FAERS Safety Report 8154372-5 (Version None)
Quarter: 2012Q1

REPORT INFORMATION
  Report Type: 
  Country: None (occurrence: None)
  Receive Date: 20120215
  Receipt Date: 20120207
  Transmission Date: 20120608
  Serious: Yes (Hospitalization, Other)
  Sender: FDA-Public Use
  Company Number: ADR-2012-00283

PATIENT
  Sex: Male

DRUGS (2)
  1. LIORESAL [Suspect]
     Indication: CEREBRAL PALSY
     Dosage: 199.93 MCG/DAY
  2. LIORESAL [Suspect]
     Indication: MUSCLE SPASTICITY
     Dosage: 199.93 MCG/DAY

REACTIONS (4)
  - DEVICE OCCLUSION [None]
  - ABNORMAL BEHAVIOUR [None]
  - DRUG WITHDRAWAL SYNDROME [None]
  - HYPERTONIA [None]
